FAERS Safety Report 15983998 (Version 8)
Quarter: 2019Q2

REPORT INFORMATION
  Report Type: Spontaneous
  Country: CA (occurrence: CA)
  Receive Date: 20190220
  Receipt Date: 20190626
  Transmission Date: 20190711
  Serious: Yes (Other)
  Sender: FDA-Public Use
  Company Number: CA-CELLTRION INC.-2019CA018807

PATIENT

DRUGS (19)
  1. INFLECTRA [Suspect]
     Active Substance: INFLIXIMAB-DYYB
     Dosage: 900 MG, (EVERY 6 WEEKS THEN EVERY 8 WEEKS).
     Route: 042
     Dates: start: 20190307
  2. VANCOMYCIN [Concomitant]
     Active Substance: VANCOMYCIN
     Dosage: 125 MG, 4X/DAY
     Route: 065
  3. CALCIUM CARBONATE. [Concomitant]
     Active Substance: CALCIUM CARBONATE
     Dosage: 1.250 UNK, 3X/DAY
     Route: 065
  4. DALTEPARIN SODIUM [Concomitant]
     Active Substance: DALTEPARIN SODIUM
     Dosage: 5000 IU, UNK
     Route: 058
  5. INFLECTRA [Suspect]
     Active Substance: INFLIXIMAB-DYYB
     Dosage: 900 MG, (EVERY 6 WEEKS THEN EVERY 8 WEEKS).
     Route: 042
     Dates: start: 20190307, end: 20190307
  6. INFLECTRA [Suspect]
     Active Substance: INFLIXIMAB-DYYB
     Dosage: 900 MG, (EVERY 6 WEEKS THEN EVERY 8 WEEKS)
     Route: 042
     Dates: start: 20190426, end: 20190426
  7. METHYLPREDNISOLONE. [Concomitant]
     Active Substance: METHYLPREDNISOLONE
     Dosage: 30 MG, UNK
     Route: 042
  8. INFLECTRA [Suspect]
     Active Substance: INFLIXIMAB-DYYB
     Indication: COLITIS ULCERATIVE
     Dosage: 5 MG/KG, EVERY 8 WEEKS
     Route: 042
     Dates: start: 20190124, end: 20190129
  9. INFLECTRA [Suspect]
     Active Substance: INFLIXIMAB-DYYB
     Dosage: 5 MG/KG
     Route: 042
     Dates: start: 20190129, end: 20190129
  10. METHYLPREDNISOLONE. [Concomitant]
     Active Substance: METHYLPREDNISOLONE
     Dosage: 30 MG, 2X/DAY
     Route: 042
     Dates: start: 20190205
  11. FOLIC ACID. [Concomitant]
     Active Substance: FOLIC ACID
     Dosage: 5 MG, DAILY
     Route: 065
  12. INFLECTRA [Suspect]
     Active Substance: INFLIXIMAB-DYYB
     Dosage: 1000 MG, THEN EVERY 4 WEEKS
     Route: 042
     Dates: start: 20190524
  13. IRON SUCROSE [Concomitant]
     Active Substance: IRON SUCROSE
     Dosage: UNK
     Route: 065
  14. PREDNISONE. [Suspect]
     Active Substance: PREDNISONE
     Dosage: 40 MG, 1X/DAY TAPERING
     Route: 048
     Dates: start: 20190205
  15. DALTEPARIN SODIUM [Concomitant]
     Active Substance: DALTEPARIN SODIUM
     Dosage: 2500 IU, UNK
     Route: 065
  16. INFLECTRA [Suspect]
     Active Substance: INFLIXIMAB-DYYB
     Dosage: 10 MG/KG, (800MG) AT 2, 6 WEEKS THEN EVERY 8 WEEKS
     Route: 042
     Dates: start: 20190206, end: 20190206
  17. VITAMIN D [COLECALCIFEROL] [Concomitant]
     Active Substance: CHOLECALCIFEROL
     Dosage: 2000 IU, DAILY
     Route: 065
  18. VANCOMYCIN [Concomitant]
     Active Substance: VANCOMYCIN
     Dosage: 125 MG, 4X/DAY
     Route: 065
  19. PREDNISONE. [Suspect]
     Active Substance: PREDNISONE
     Dosage: 20 MG, TAPERING
     Route: 048

REACTIONS (14)
  - Drug level decreased [Unknown]
  - Abdominal mass [Unknown]
  - Haemorrhage [Recovering/Resolving]
  - Clostridium test positive [Unknown]
  - Weight increased [Not Recovered/Not Resolved]
  - White blood cell count increased [Unknown]
  - Inappropriate schedule of product administration [Unknown]
  - Loss of personal independence in daily activities [Not Recovered/Not Resolved]
  - Off label use [Unknown]
  - Platelet count increased [Unknown]
  - Condition aggravated [Not Recovered/Not Resolved]
  - Oedema [Unknown]
  - Erythema [Unknown]
  - Pseudopolyp [Unknown]

NARRATIVE: CASE EVENT DATE: 20190129
